FAERS Safety Report 7527809-X (Version None)
Quarter: 2011Q2

REPORT INFORMATION
  Report Type: 
  Country: None (occurrence: None)
  Receive Date: 20110607
  Receipt Date: 20110602
  Transmission Date: 20111010
  Serious: Yes (Life-Threatening)
  Sender: FDA-Public Use
  Company Number: CN-SANOFI-AVENTIS-2011SA034491

PATIENT
  Age: 76 Year
  Sex: Male

DRUGS (6)
  1. ASPIRIN [Suspect]
     Route: 048
     Dates: start: 20110514, end: 20110531
  2. PLAVIX [Suspect]
     Indication: PERCUTANEOUS CORONARY INTERVENTION
     Route: 048
     Dates: start: 20110524, end: 20110531
  3. HEPARIN CALCIUM [Suspect]
     Indication: PERCUTANEOUS CORONARY INTERVENTION
     Route: 058
     Dates: start: 20110514, end: 20110531
  4. PLAVIX [Suspect]
     Indication: THROMBOSIS PROPHYLAXIS
     Route: 048
     Dates: start: 20110524, end: 20110531
  5. HEPARIN CALCIUM [Suspect]
     Route: 058
     Dates: start: 20110514, end: 20110531
  6. ASPIRIN [Suspect]
     Indication: PERCUTANEOUS CORONARY INTERVENTION
     Route: 048
     Dates: start: 20110514, end: 20110531

REACTIONS (5)
  - COMA [None]
  - HAEMORRHAGIC STROKE [None]
  - HEMIPLEGIA [None]
  - APHASIA [None]
  - RESPIRATORY ARREST [None]
